FAERS Safety Report 17649201 (Version 4)
Quarter: 2020Q4

REPORT INFORMATION
  Report Type: Report from Study
  Country: AR (occurrence: AR)
  Receive Date: 20200408
  Receipt Date: 20201022
  Transmission Date: 20210113
  Serious: Yes (Hospitalization, Other)
  Sender: FDA-Public Use
  Company Number: NVSC2020AR094787

PATIENT
  Age: 12 Year
  Sex: Female

DRUGS (1)
  1. REVOLADE [Suspect]
     Active Substance: ELTROMBOPAG
     Indication: IMMUNE THROMBOCYTOPENIA
     Dosage: 50 MG, QD (ESTIMATED A YEAR AND HALF AGO) (STOPPED A MONTH AGO)
     Route: 048

REACTIONS (11)
  - Migraine [Not Recovered/Not Resolved]
  - Platelet count decreased [Recovering/Resolving]
  - Gingival bleeding [Not Recovered/Not Resolved]
  - Eating disorder [Unknown]
  - Ecchymosis [Recovering/Resolving]
  - Alopecia [Not Recovered/Not Resolved]
  - Sitting disability [Unknown]
  - Contusion [Recovering/Resolving]
  - Product supply issue [Unknown]
  - Epistaxis [Not Recovered/Not Resolved]
  - Petechiae [Recovering/Resolving]

NARRATIVE: CASE EVENT DATE: 202004
